FAERS Safety Report 6074562-5 (Version None)
Quarter: 2009Q1

REPORT INFORMATION
  Report Type: 
  Country: None (occurrence: None)
  Receive Date: 20090206
  Receipt Date: 20090203
  Transmission Date: 20090719
  Serious: Yes (Other)
  Sender: FDA-Public Use
  Company Number: A0766498A

PATIENT
  Age: 59 Year
  Sex: Female

DRUGS (1)
  1. UREA HYDROGEN PEROXIDE DROP(S) (UREA HYGROGEN PEROXIDE) [Suspect]
     Dosage: AURAL

REACTIONS (2)
  - DEAFNESS [None]
  - EAR DISORDER [None]
